FAERS Safety Report 6043383-1 (Version None)
Quarter: 2009Q1

REPORT INFORMATION
  Report Type: 
  Country: None (occurrence: None)
  Receive Date: 20090120
  Receipt Date: 20090115
  Transmission Date: 20090719
  Serious: Yes (Hospitalization)
  Sender: FDA-Public Use
  Company Number: US-JNJFOC-20090104023

PATIENT
  Sex: Male
  Weight: 68.04 kg

DRUGS (4)
  1. DURAGESIC-100 [Suspect]
     Indication: PANCREATITIS CHRONIC
     Route: 062
  2. PROTONIX [Concomitant]
     Indication: GASTRIC DISORDER
  3. ADVAIR DISKUS 100/50 [Concomitant]
     Indication: CHRONIC OBSTRUCTIVE PULMONARY DISEASE
     Route: 055
  4. UNSPECIFIED MEDICATION [Concomitant]
     Route: 055

REACTIONS (7)
  - DEHYDRATION [None]
  - DRUG DOSE OMISSION [None]
  - EATING DISORDER [None]
  - FLUID INTAKE REDUCED [None]
  - NAUSEA [None]
  - PAIN [None]
  - WEIGHT DECREASED [None]
